FAERS Safety Report 9725368 (Version 1)
Quarter: 2013Q4

REPORT INFORMATION
  Report Type: Spontaneous
  Country: US (occurrence: None)
  Receive Date: 20131129
  Receipt Date: 20131129
  Transmission Date: 20140711
  Serious: Yes (Hospitalization, Other)
  Sender: FDA-Public Use
  Company Number: ADR-2013-02167

PATIENT
  Sex: Male

DRUGS (2)
  1. BACLOFEN [Suspect]
     Indication: PAIN
  2. DILAUDID (HYDROMORPHONE) [Suspect]

REACTIONS (9)
  - Incorrect route of drug administration [None]
  - Overdose [None]
  - Loss of consciousness [None]
  - Somnolence [None]
  - Respiratory depression [None]
  - Dysphagia [None]
  - Heart rate decreased [None]
  - Medical device complication [None]
  - Haemorrhage [None]
